FAERS Safety Report 7359518-4 (Version None)
Quarter: 2011Q1

REPORT INFORMATION
  Report Type: 
  Country: None (occurrence: None)
  Receive Date: 20110317
  Receipt Date: 20110308
  Transmission Date: 20110831
  Serious: Yes (Other)
  Sender: FDA-Public Use
  Company Number: US-ASTRAZENECA-2007UW21466

PATIENT
  Age: 64 Year
  Sex: Female
  Weight: 66.7 kg

DRUGS (9)
  1. AMITRIPTYLINE [Concomitant]
  2. ARIMIDEX [Suspect]
     Indication: BREAST CANCER
     Route: 048
     Dates: start: 20060101
  3. ASACHOL [Concomitant]
  4. VYTORIN [Concomitant]
     Dates: start: 20060101
  5. VITAMIN D [Concomitant]
  6. VITAMIN B [Concomitant]
  7. MULTI-VITAMIN [Concomitant]
  8. ZANTAC [Concomitant]
     Dates: start: 20060101
  9. FISH OIL [Concomitant]
     Dates: start: 20060101

REACTIONS (15)
  - ALOPECIA [None]
  - GAIT DISTURBANCE [None]
  - BLOOD CHOLESTEROL INCREASED [None]
  - DYSPEPSIA [None]
  - MUSCULOSKELETAL PAIN [None]
  - THROAT IRRITATION [None]
  - WEIGHT INCREASED [None]
  - NECK PAIN [None]
  - INSOMNIA [None]
  - BLADDER PROLAPSE [None]
  - DISEASE PROGRESSION [None]
  - ARTHRALGIA [None]
  - JOINT CREPITATION [None]
  - PARAESTHESIA [None]
  - FOOD CRAVING [None]
